FAERS Safety Report 4309607-3 (Version None)
Quarter: 2004Q1

REPORT INFORMATION
  Report Type: 
  Country: None (occurrence: None)
  Receive Date: 20040302
  Receipt Date: 20031031
  Transmission Date: 20041129
  Serious: Yes (Other)
  Sender: FDA-Public Use
  Company Number: WAES 0311USA00023

PATIENT
  Age: 65 Year
  Sex: Male
  Weight: 94 kg

DRUGS (10)
  1. ASPIRIN [Concomitant]
  2. PLAVIX [Concomitant]
  3. NEXIUM [Concomitant]
  4. ZETIA [Suspect]
     Indication: HYPERLIPIDAEMIA
     Route: 048
     Dates: start: 20031024, end: 20031029
  5. ZETIA [Suspect]
     Indication: BLOOD CHOLESTEROL INCREASED
     Route: 048
     Dates: start: 20031024, end: 20031029
  6. DALMANE [Concomitant]
  7. FOLIC ACID [Concomitant]
  8. PRINIVIL [Concomitant]
     Route: 048
  9. LOPRESSOR [Concomitant]
     Route: 048
  10. ZOCOR [Concomitant]
     Route: 048

REACTIONS (5)
  - ANGIONEUROTIC OEDEMA [None]
  - PRURITUS [None]
  - RASH MORBILLIFORM [None]
  - RASH PAPULAR [None]
  - URTICARIA [None]
